FAERS Safety Report 14056843 (Version 5)
Quarter: 2017Q4

REPORT INFORMATION
  Report Type: Spontaneous
  Country: US (occurrence: US)
  Receive Date: 20171006
  Receipt Date: 20171114
  Transmission Date: 20180321
  Serious: Yes (Other)
  Sender: FDA-Public Use
  Company Number: US-SA-2017SA189304

PATIENT
  Age: 87 Year
  Sex: Female
  Weight: 42.18 kg

DRUGS (5)
  1. LANTUS SOLOSTAR [Suspect]
     Active Substance: INSULIN GLARGINE
     Indication: TYPE 1 DIABETES MELLITUS
     Dosage: DOSE:4 UNIT(S)
     Route: 058
     Dates: start: 2007
  2. NOVOLOG [Concomitant]
     Active Substance: INSULIN ASPART
  3. SOLOSTAR [Suspect]
     Active Substance: DEVICE
     Indication: TYPE 1 DIABETES MELLITUS
     Dates: start: 2007
  4. LANTUS SOLOSTAR [Suspect]
     Active Substance: INSULIN GLARGINE
     Indication: TYPE 1 DIABETES MELLITUS
     Dosage: DOSE:4 UNIT(S)
     Route: 058
     Dates: start: 2007
  5. SOLOSTAR [Suspect]
     Active Substance: DEVICE
     Indication: TYPE 1 DIABETES MELLITUS
     Dates: start: 2007

REACTIONS (9)
  - Incorrect dose administered [Unknown]
  - Blood glucose decreased [Not Recovered/Not Resolved]
  - Product use issue [Unknown]
  - Incorrect drug administration duration [Unknown]
  - Hypoglycaemic coma [Recovered/Resolved]
  - Cerebrovascular accident [Unknown]
  - Paralytic disability [Unknown]
  - Nervousness [Unknown]
  - Blood glucose increased [Not Recovered/Not Resolved]

NARRATIVE: CASE EVENT DATE: 2007
